FAERS Safety Report 7354854-X (Version None)
Quarter: 2011Q1

REPORT INFORMATION
  Report Type: 
  Country: None (occurrence: None)
  Receive Date: 20110316
  Receipt Date: 20110308
  Transmission Date: 20110831
  Serious: Yes (Other)
  Sender: FDA-Public Use
  Company Number: US-SANOFI-AVENTIS-2011SA014870

PATIENT
  Age: 53 Year
  Sex: Male

DRUGS (6)
  1. AMLODIPINE [Concomitant]
     Indication: HYPERTENSION
  2. OXYCODONE [Suspect]
     Dates: start: 20110307
  3. IBUPROFEN [Concomitant]
  4. PRILOSEC [Concomitant]
  5. CORGARD [Concomitant]
     Indication: HYPERTENSION
  6. LOVENOX [Suspect]
     Indication: PULMONARY EMBOLISM
     Route: 065
     Dates: start: 20110304

REACTIONS (3)
  - PLEURISY [None]
  - ABNORMAL DREAMS [None]
  - AGITATION [None]
